FAERS Safety Report 11802895 (Version 3)
Quarter: 2015Q4

REPORT INFORMATION
  Report Type: Report from Study
  Country: NL (occurrence: NL)
  Receive Date: 20151204
  Receipt Date: 20151229
  Transmission Date: 20160305
  Serious: Yes (Hospitalization)
  Sender: FDA-Public Use
  Company Number: NL-BAXALTA-2015BLT002394

PATIENT
  Age: 47 Year
  Sex: Male

DRUGS (4)
  1. KIOVIG [Suspect]
     Active Substance: HUMAN IMMUNOGLOBULIN G
     Indication: HYPOGAMMAGLOBULINAEMIA
     Dosage: 30 G, EVERY 3 WK
     Route: 042
     Dates: start: 20151012, end: 20151012
  2. KIOVIG [Suspect]
     Active Substance: HUMAN IMMUNOGLOBULIN G
     Dosage: 30 G, EVERY 3 WK
     Route: 042
     Dates: start: 20150512, end: 20150512
  3. KIOVIG [Suspect]
     Active Substance: HUMAN IMMUNOGLOBULIN G
     Indication: HYPOGAMMAGLOBULINAEMIA
     Dosage: 5 G, EVERY 3 WK
     Route: 042
     Dates: start: 20151012, end: 20151012
  4. KIOVIG [Suspect]
     Active Substance: HUMAN IMMUNOGLOBULIN G
     Dosage: 5 G, EVERY 3 WK
     Route: 042
     Dates: start: 20150512, end: 20150512

REACTIONS (2)
  - Condition aggravated [Not Recovered/Not Resolved]
  - Blood test abnormal [Unknown]

NARRATIVE: CASE EVENT DATE: 20151019
